FAERS Safety Report 16165595 (Version 1)
Quarter: 2019Q2

REPORT INFORMATION
  Report Type: Spontaneous
  Country: BR (occurrence: BR)
  Receive Date: 20190405
  Receipt Date: 20190405
  Transmission Date: 20190711
  Serious: Yes (Other)
  Sender: FDA-Public Use
  Company Number: BR-MYLANLABS-2019M1031945

PATIENT
  Sex: Female
  Weight: 54 kg

DRUGS (4)
  1. CLOZAPINE. [Suspect]
     Active Substance: CLOZAPINE
     Indication: SCHIZOPHRENIA
     Dosage: UNK
  2. LEPONEX 100 MG [Suspect]
     Active Substance: CLOZAPINE
     Indication: SCHIZOPHRENIA
     Dosage: UNK UNK, QD
     Route: 048
  3. LEPONEX 100 MG [Suspect]
     Active Substance: CLOZAPINE
     Dosage: 2 DOSAGE FORM, PM
     Route: 048
  4. LEPONEX 100 MG [Suspect]
     Active Substance: CLOZAPINE
     Dosage: 1 DOSAGE FORM, AM
     Route: 048

REACTIONS (4)
  - Product availability issue [Unknown]
  - Product substitution issue [Unknown]
  - Adverse event [Unknown]
  - Drug ineffective [Unknown]
